FAERS Safety Report 9450894 (Version 5)
Quarter: 2014Q1

REPORT INFORMATION
  Report Type: Report from Study
  Country: MX (occurrence: MX)
  Receive Date: 20130809
  Receipt Date: 20140117
  Transmission Date: 20141002
  Serious: Yes (Death, Other)
  Sender: FDA-Public Use
  Company Number: MX-BRISTOL-MYERS SQUIBB COMPANY-19162171

PATIENT
  Age: 69 Year
  Sex: Female

DRUGS (4)
  1. ABATACEPT [Suspect]
     Indication: RHEUMATOID ARTHRITIS
     Route: 058
     Dates: start: 20081021
  2. METHOTREXATE [Concomitant]
     Dates: start: 20050617, end: 20130703
  3. PREDNISONE [Concomitant]
     Dates: start: 20100407
  4. FOLIC ACID [Concomitant]
     Dates: start: 20010927

REACTIONS (4)
  - Renal failure acute [Fatal]
  - Acute respiratory failure [Fatal]
  - Pneumonia [Fatal]
  - Major depression [Recovered/Resolved]
